FAERS Safety Report 25871374 (Version 1)
Quarter: 2025Q4

REPORT INFORMATION
  Report Type: Spontaneous
  Country: US (occurrence: US)
  Receive Date: 20251001
  Receipt Date: 20251001
  Transmission Date: 20260117
  Serious: No
  Sender: ABBVIE
  Company Number: US-ABBVIE-6483286

PATIENT

DRUGS (1)
  1. RINVOQ [Suspect]
     Active Substance: UPADACITINIB
     Indication: Autoimmune disorder
     Route: 048

REACTIONS (5)
  - Dizziness [Unknown]
  - Somnolence [Unknown]
  - Postural orthostatic tachycardia syndrome [Unknown]
  - Headache [Unknown]
  - Nausea [Unknown]
